FAERS Safety Report 5232078-X (Version None)
Quarter: 2007Q1

REPORT INFORMATION
  Report Type: 
  Country: None (occurrence: None)
  Receive Date: 20061201
  Receipt Date: 20060830
  Transmission Date: 20070707
  Serious: No
  Sender: FDA-Public Use
  Company Number: US200608006920

PATIENT
  Age: 69 Year
  Sex: Male

DRUGS (6)
  1. CYMBALTA [Suspect]
     Dosage: 30 MG, EACH EVENING
     Dates: start: 20060828, end: 20060829
  2. ESZOPICLONE (ESZOPICLONE) [Concomitant]
  3. LOVASTATIN [Concomitant]
  4. PROTONIX [Concomitant]
  5. FLOMAX [Concomitant]
  6. TESTOSTERONE [Concomitant]

REACTIONS (9)
  - ABDOMINAL PAIN UPPER [None]
  - BACK PAIN [None]
  - BALANCE DISORDER [None]
  - CONSTIPATION [None]
  - HALLUCINATION, AUDITORY [None]
  - INSOMNIA [None]
  - MEMORY IMPAIRMENT [None]
  - POLLAKIURIA [None]
  - URINE ODOUR ABNORMAL [None]
